FAERS Safety Report 8804076 (Version 1)
Quarter: 2012Q4

REPORT INFORMATION
  Report Type: 
  Country: US (occurrence: US)
  Receive Date: 20120924
  Receipt Date: 20120924
  Transmission Date: 20130627
  Serious: Yes (Other)
  Sender: FDA-Public Use
  Company Number: US-JNJFOC-20120906210

PATIENT
  Sex: Male
  Weight: 102.97 kg

DRUGS (1)
  1. RISPERDAL [Suspect]
     Indication: PRODUCT USED FOR UNKNOWN INDICATION
     Route: 048
     Dates: start: 20110510

REACTIONS (4)
  - Blood triglycerides increased [Not Recovered/Not Resolved]
  - Total cholesterol/HDL ratio abnormal [Not Recovered/Not Resolved]
  - Glycosylated haemoglobin increased [Not Recovered/Not Resolved]
  - Treatment noncompliance [Unknown]
